FAERS Safety Report 10023855 (Version 1)
Quarter: 2014Q1

REPORT INFORMATION
  Report Type: Spontaneous
  Country: US (occurrence: US)
  Receive Date: 20140320
  Receipt Date: 20140320
  Transmission Date: 20141002
  Serious: Yes (Other)
  Sender: FDA-Public Use
  Company Number: US-ASTRAZENECA-2014SE17912

PATIENT
  Age: 60 Year
  Sex: Male
  Weight: 91.6 kg

DRUGS (1)
  1. SEROQUEL [Suspect]
     Indication: SLEEP DISORDER
     Route: 048
     Dates: start: 2005

REACTIONS (11)
  - Suicidal ideation [Unknown]
  - Anxiety [Unknown]
  - Panic attack [Unknown]
  - Depression [Unknown]
  - Mood swings [Unknown]
  - Anger [Unknown]
  - Aggression [Unknown]
  - Anxiety [Unknown]
  - Insomnia [Unknown]
  - Somnolence [Unknown]
  - Off label use [Unknown]
